FAERS Safety Report 4558363-2 (Version None)
Quarter: 2005Q1

REPORT INFORMATION
  Report Type: 
  Country: None (occurrence: None)
  Receive Date: 20050121
  Receipt Date: 20040930
  Transmission Date: 20050727
  Serious: No
  Sender: FDA-Public Use
  Company Number: US-BRISTOL-MYERS SQUIBB COMPANY-12718391

PATIENT
  Age: 75 Year
  Sex: Male
  Weight: 90 kg

DRUGS (12)
  1. ULTRAVATE [Suspect]
     Indication: RASH PAPULAR
     Route: 061
     Dates: start: 20040901, end: 20040901
  2. ALBUTEROL [Concomitant]
  3. SPIRIVA [Concomitant]
  4. FLOVENT [Concomitant]
  5. PRIMIDONE [Concomitant]
  6. BROMOCRIPTINE [Concomitant]
  7. FLUNISOLIDE [Concomitant]
  8. COUMADIN [Concomitant]
  9. LASIX [Concomitant]
  10. TIKOSYN [Concomitant]
  11. OMEPRAZOLE [Concomitant]
  12. PRAMIPEXOLE HCL [Concomitant]

REACTIONS (1)
  - URTICARIA [None]
